FAERS Safety Report 7834166-8 (Version None)
Quarter: 2011Q4

REPORT INFORMATION
  Report Type: 
  Country: None (occurrence: None)
  Receive Date: 20111024
  Receipt Date: 20111015
  Transmission Date: 20120403
  Serious: Yes (Other)
  Sender: FDA-Public Use
  Company Number: PHHY2011BR91905

PATIENT
  Sex: Female

DRUGS (2)
  1. DIOVAN HCT [Suspect]
     Dosage: 80/12.5 MG
  2. DIOVAN HCT [Suspect]
     Dosage: 160/12.5 MG

REACTIONS (1)
  - BLOOD PRESSURE INCREASED [None]
